FAERS Safety Report 10148794 (Version 1)
Quarter: 2014Q2

REPORT INFORMATION
  Report Type: Spontaneous
  Country: CA (occurrence: CA)
  Receive Date: 20140502
  Receipt Date: 20140502
  Transmission Date: 20141212
  Serious: Yes (Other)
  Sender: FDA-Public Use
  Company Number: CA-009507513-1404CAN015697

PATIENT
  Age: 52 Year
  Sex: Female

DRUGS (5)
  1. JANUVIA [Suspect]
     Dosage: 1 DF, QD
     Route: 048
  2. EFFEXOR XR [Concomitant]
  3. METFORMIN [Concomitant]
  4. MINOCYCLINE [Concomitant]
  5. TECTA [Concomitant]

REACTIONS (2)
  - Lipase increased [Unknown]
  - Pancreatitis [Unknown]
